FAERS Safety Report 13372897 (Version 2)
Quarter: 2017Q1

REPORT INFORMATION
  Report Type: Spontaneous
  Country: JP (occurrence: JP)
  Receive Date: 20170327
  Receipt Date: 20170331
  Transmission Date: 20170429
  Serious: Yes (Hospitalization)
  Sender: FDA-Public Use
  Company Number: JP-JNJFOC-20170325156

PATIENT
  Sex: Female

DRUGS (2)
  1. DUROTEP MT [Suspect]
     Active Substance: FENTANYL
     Indication: CANCER PAIN
     Route: 062
     Dates: end: 20170321
  2. DUROTEP MT [Suspect]
     Active Substance: FENTANYL
     Indication: CANCER PAIN
     Route: 062

REACTIONS (4)
  - Treatment noncompliance [Unknown]
  - Palpitations [Unknown]
  - Hospitalisation [Unknown]
  - Wrong technique in product usage process [Unknown]

NARRATIVE: CASE EVENT DATE: 20170321
